FAERS Safety Report 6081364-2 (Version None)
Quarter: 2009Q1

REPORT INFORMATION
  Report Type: 
  Country: None (occurrence: None)
  Receive Date: 20090218
  Receipt Date: 20090209
  Transmission Date: 20090719
  Serious: Yes (Hospitalization)
  Sender: FDA-Public Use
  Company Number: US-JNJFOC-20090203965

PATIENT
  Sex: Female
  Weight: 49.9 kg

DRUGS (2)
  1. DURAGESIC-100 [Suspect]
     Indication: BACK PAIN
     Route: 062
  2. PEROCET [Concomitant]
     Indication: BACK PAIN
     Dosage: 10-325 MG AS NEEDED
     Route: 048

REACTIONS (3)
  - BACK PAIN [None]
  - DRUG PRESCRIBING ERROR [None]
  - MUSCLE SPASMS [None]
